FAERS Safety Report 15000246 (Version 2)
Quarter: 2018Q2

REPORT INFORMATION
  Report Type: Spontaneous
  Country: ES (occurrence: ES)
  Receive Date: 20180612
  Receipt Date: 20180625
  Transmission Date: 20180711
  Serious: Yes (Other)
  Sender: FDA-Public Use
  Company Number: ES-ASTRAZENECA-2018SE74291

PATIENT
  Age: 30 Year
  Sex: Male

DRUGS (1)
  1. BUDESONIDE. [Suspect]
     Active Substance: BUDESONIDE
     Indication: ASTHMA
     Dosage: 200-400 MICROG/DAY FOR PERIODS OF UP TO 2 CONSECUTIVE YEARS
     Route: 055

REACTIONS (1)
  - Actinomycosis [Recovered/Resolved]
